FAERS Safety Report 6224934-0 (Version None)
Quarter: 2009Q2

REPORT INFORMATION
  Report Type: 
  Country: None (occurrence: None)
  Receive Date: 20090612
  Receipt Date: 20090401
  Transmission Date: 20091009
  Serious: No
  Sender: FDA-Public Use
  Company Number: US-ABBOTT-09P-163-0566005-00

PATIENT
  Sex: Female
  Weight: 90.8 kg

DRUGS (8)
  1. HUMIRA [Suspect]
     Indication: RHEUMATOID ARTHRITIS
     Route: 058
     Dates: start: 20061201
  2. METHOTREXATE [Concomitant]
     Indication: RHEUMATOID ARTHRITIS
     Route: 048
  3. PLAQUENIL [Concomitant]
     Indication: RHEUMATOID ARTHRITIS
  4. PRILOSEC [Concomitant]
     Indication: GASTRIC ULCER
     Route: 048
  5. FOLIC ACID [Concomitant]
     Indication: MEDICAL DIET
  6. PERCOCETTE [Concomitant]
     Indication: PAIN
     Dosage: EVERY SIX HOURS AS NEEDED
  7. HYDROCODONE BITARTRATE [Concomitant]
     Indication: PAIN
     Dosage: EVERY FOUR HOURS AS NEEDED
     Route: 048
  8. VITAMIN D [Concomitant]
     Indication: MEDICAL DIET

REACTIONS (2)
  - ARTHROPOD BITE [None]
  - PRURITUS [None]
